FAERS Safety Report 10241008 (Version 2)
Quarter: 2014Q2

REPORT INFORMATION
  Report Type: Report from Study
  Country: JP (occurrence: JP)
  Receive Date: 20140617
  Receipt Date: 20140617
  Transmission Date: 20141212
  Serious: Yes (Other)
  Sender: FDA-Public Use
  Company Number: JP-ASTELLAS-2013JP009800

PATIENT
  Age: 75 Year
  Sex: Male

DRUGS (5)
  1. TACROLIMUS [Suspect]
     Indication: IMMUNOSUPPRESSION
     Dosage: UNK UNK, UNKNOWN FREQ.
     Route: 065
  2. METHYLPREDNISOLONE [Concomitant]
     Indication: IMMUNOSUPPRESSION
     Route: 042
  3. METHYLPREDNISOLONE [Concomitant]
     Dosage: 0.5 MG/KG, ONCE DAILY
     Route: 042
  4. PREDNISOLONE [Concomitant]
     Indication: IMMUNOSUPPRESSION
     Dosage: 0.3 MG/KG, ONCE DAILY
     Route: 048
  5. PREDNISOLONE [Concomitant]
     Dosage: 0.1 MG/KG, ONCE DAILY
     Route: 048

REACTIONS (1)
  - Renal disorder [Unknown]
